FAERS Safety Report 18977637 (Version 9)
Quarter: 2022Q4

REPORT INFORMATION
  Report Type: Report from Study
  Country: MX (occurrence: MX)
  Receive Date: 20210306
  Receipt Date: 20221006
  Transmission Date: 20230113
  Serious: Yes (Other)
  Sender: FDA-Public Use
  Company Number: NVSC2021MX025625

PATIENT
  Age: 33 Year
  Sex: Female
  Weight: 69 kg

DRUGS (2)
  1. TASIGNA [Suspect]
     Active Substance: NILOTINIB
     Indication: Chronic myeloid leukaemia
     Dosage: 800 MG, QD
     Route: 048
     Dates: start: 2012
  2. AMITRIPTYLINE [Concomitant]
     Active Substance: AMITRIPTYLINE
     Indication: Cystitis interstitial
     Dosage: 40 MG, QD (? )
     Route: 065

REACTIONS (21)
  - Hypothyroidism [Not Recovered/Not Resolved]
  - Bladder pain [Unknown]
  - Chronic myeloid leukaemia recurrent [Unknown]
  - Hunger [Unknown]
  - Anxiety [Recovering/Resolving]
  - Weight increased [Unknown]
  - General physical health deterioration [Recovering/Resolving]
  - COVID-19 [Unknown]
  - Headache [Recovering/Resolving]
  - Vomiting [Recovered/Resolved]
  - Fatigue [Not Recovered/Not Resolved]
  - Nausea [Recovered/Resolved]
  - Diarrhoea [Recovered/Resolved]
  - Stress [Unknown]
  - Feeling abnormal [Unknown]
  - Pharyngeal disorder [Unknown]
  - Aphasia [Unknown]
  - Depression [Unknown]
  - Constipation [Recovering/Resolving]
  - Eating disorder [Recovering/Resolving]
  - Inappropriate schedule of product administration [Unknown]

NARRATIVE: CASE EVENT DATE: 20210109
